FAERS Safety Report 16873572 (Version 2)
Quarter: 2019Q4

REPORT INFORMATION
  Report Type: Report from Study
  Country: RU (occurrence: RU)
  Receive Date: 20191001
  Receipt Date: 20191016
  Transmission Date: 20200122
  Serious: Yes (Death)
  Sender: FDA-Public Use
  Company Number: RU-ACTELION-A-CH2019-195879

PATIENT
  Age: 74 Year
  Sex: Female
  Weight: 69.5 kg

DRUGS (6)
  1. OXYGEN. [Suspect]
     Active Substance: OXYGEN
     Indication: PRODUCT USED FOR UNKNOWN INDICATION
     Dosage: 2 L/MIN, 16 H DAILY
  2. SELEXIPAG [Suspect]
     Active Substance: SELEXIPAG
     Indication: PULMONARY ARTERIAL HYPERTENSION
     Dosage: 400 MCG
     Route: 048
     Dates: start: 20140623, end: 20190828
  3. NORVASK [Suspect]
     Active Substance: AMLODIPINE BESYLATE
     Indication: PRODUCT USED FOR UNKNOWN INDICATION
     Dosage: 10 MG, QD
     Route: 048
     Dates: start: 2005
  4. VEROSPIRON [Concomitant]
     Active Substance: SPIRONOLACTONE
     Dosage: 100 MG, QD
     Dates: start: 20141211
  5. BOSENTAN. [Suspect]
     Active Substance: BOSENTAN
     Indication: PRODUCT USED FOR UNKNOWN INDICATION
     Dosage: 250 MG, QD
     Route: 048
     Dates: start: 20141001
  6. TROMBO ASS [Suspect]
     Active Substance: ASPIRIN
     Indication: PRODUCT USED FOR UNKNOWN INDICATION
     Dosage: 100 MG, QD
     Route: 048
     Dates: start: 1998

REACTIONS (4)
  - Syncope [Fatal]
  - Dyspnoea [Fatal]
  - Chest pain [Fatal]
  - Acute right ventricular failure [Fatal]

NARRATIVE: CASE EVENT DATE: 20190828
